FAERS Safety Report 14290361 (Version 1)
Quarter: 2017Q4

REPORT INFORMATION
  Report Type: Spontaneous
  Country: BE (occurrence: BE)
  Receive Date: 20171215
  Receipt Date: 20171215
  Transmission Date: 20180321
  Serious: Yes (Other)
  Sender: FDA-Public Use
  Company Number: BE-LUPIN PHARMACEUTICALS INC.-2017-07201

PATIENT
  Age: 56 Year

DRUGS (6)
  1. TOBRAMYCIN. [Suspect]
     Active Substance: TOBRAMYCIN
     Indication: PRODUCT USED FOR UNKNOWN INDICATION
     Dosage: 8 TIMES, QD
     Route: 061
  2. DESOMEDINE [Concomitant]
     Active Substance: HEXAMIDINE DIISETHIONATE
     Dosage: 5 TIMES, QD
     Route: 061
  3. TOBRAMYCIN. [Suspect]
     Active Substance: TOBRAMYCIN
     Dosage: 1 PER HOUR
     Route: 061
  4. DESOMEDINE [Concomitant]
     Active Substance: HEXAMIDINE DIISETHIONATE
     Indication: PRODUCT USED FOR UNKNOWN INDICATION
     Dosage: 8 TIMES, QD
     Route: 065
  5. MOXIFLOXACIN. [Suspect]
     Active Substance: MOXIFLOXACIN
     Indication: PRODUCT USED FOR UNKNOWN INDICATION
     Dosage: 8 TIMES, QD
     Route: 065
  6. MOXIFLOXACIN. [Suspect]
     Active Substance: MOXIFLOXACIN
     Dosage: 5 TIMES, QD
     Route: 061

REACTIONS (2)
  - Ulcerative keratitis [Recovered/Resolved]
  - Corneal perforation [Recovered/Resolved]
